FAERS Safety Report 5837380-6 (Version None)
Quarter: 2008Q3

REPORT INFORMATION
  Report Type: 
  Country: None (occurrence: None)
  Receive Date: 20080807
  Receipt Date: 20080730
  Transmission Date: 20090109
  Serious: Yes (Other)
  Sender: FDA-Public Use
  Company Number: FR-PFIZER INC-2008064306

PATIENT
  Sex: Female

DRUGS (4)
  1. LYRICA [Suspect]
     Indication: FIBROMYALGIA
  2. LYRICA [Suspect]
     Indication: GENERALISED ANXIETY DISORDER
  3. CALCIUM CARBONATE [Concomitant]
  4. ALTIM [Concomitant]

REACTIONS (1)
  - HAEMATOMA [None]
